FAERS Safety Report 6041948-4 (Version None)
Quarter: 2009Q1

REPORT INFORMATION
  Report Type: 
  Country: None (occurrence: None)
  Receive Date: 20090116
  Receipt Date: 20090105
  Transmission Date: 20090719
  Serious: Yes (Other)
  Sender: FDA-Public Use
  Company Number: IT-ROCHE-606340

PATIENT
  Age: 50 Year
  Sex: Male

DRUGS (4)
  1. RIBAVIRIN [Suspect]
     Dosage: 2 TABLETS IN THE MORNING AND 3 IN THE EVENING
     Route: 065
     Dates: start: 20031101, end: 20040901
  2. PEG-INTRON [Suspect]
     Route: 065
     Dates: start: 20031101, end: 20040901
  3. STAVUDINE [Concomitant]
     Dates: start: 20040601
  4. DIDANOSINE [Concomitant]
     Dates: start: 20040601

REACTIONS (1)
  - LICHENOID KERATOSIS [None]
